FAERS Safety Report 4307633-1 (Version None)
Quarter: 2004Q1

REPORT INFORMATION
  Report Type: 
  Country: None (occurrence: None)
  Receive Date: 20040226
  Receipt Date: 20040210
  Transmission Date: 20041129
  Serious: Yes (Disabling)
  Sender: FDA-Public Use
  Company Number: 200206324

PATIENT
  Age: 43 Year
  Sex: Female
  Weight: 58.9676 kg

DRUGS (4)
  1. BOTOX PURIFIED NEUROTOXIN COMPLEX [Suspect]
     Indication: MIGRAINE
     Dosage: 92 UNITS PRN IM
     Route: 030
     Dates: start: 20010507
  2. BOTOX PURIFIED NEUROTOXIN COMPLEX [Suspect]
     Indication: SKIN WRINKLING
     Dosage: 92 UNITS PRN IM
     Route: 030
     Dates: start: 20010507
  3. IMITREX [Concomitant]
  4. FIORINAL [Concomitant]

REACTIONS (28)
  - ALLODYNIA [None]
  - BACK PAIN [None]
  - BRONCHITIS VIRAL [None]
  - COGNITIVE DISORDER [None]
  - DEPRESSION [None]
  - DIARRHOEA HAEMORRHAGIC [None]
  - DYSPEPSIA [None]
  - DYSPHAGIA [None]
  - EAR PAIN [None]
  - FATIGUE [None]
  - FIBROMYALGIA [None]
  - GASTRITIS [None]
  - HEADACHE [None]
  - HYPOVENTILATION [None]
  - INFLUENZA LIKE ILLNESS [None]
  - INJECTION SITE DISCOMFORT [None]
  - INSOMNIA [None]
  - IRRITABLE BOWEL SYNDROME [None]
  - MARKEDLY REDUCED DIETARY INTAKE [None]
  - MIGRAINE [None]
  - MYALGIA [None]
  - PRURITUS [None]
  - RASH [None]
  - SINUSITIS [None]
  - TENSION HEADACHE [None]
  - URTICARIA [None]
  - VISION BLURRED [None]
  - WEIGHT DECREASED [None]
